FAERS Safety Report 10417008 (Version 1)
Quarter: 2014Q3

REPORT INFORMATION
  Report Type: Report from Study
  Country: IE (occurrence: IE)
  Receive Date: 20140828
  Receipt Date: 20140828
  Transmission Date: 20150326
  Serious: Yes (Death)
  Sender: FDA-Public Use
  Company Number: IE-BAXTER-2014BAX050543

PATIENT
  Age: 4 Year
  Sex: Male

DRUGS (2)
  1. CEPROTIN [Suspect]
     Active Substance: PROTEIN C
     Indication: OFF LABEL USE
     Route: 065
  2. CEPROTIN [Suspect]
     Active Substance: PROTEIN C
     Indication: SEPTIC SHOCK
     Route: 065

REACTIONS (1)
  - Cardiac arrest [Fatal]
